FAERS Safety Report 4503785-9 (Version None)
Quarter: 2004Q4

REPORT INFORMATION
  Report Type: 
  Country: None (occurrence: None)
  Receive Date: 20041117
  Receipt Date: 20040414
  Transmission Date: 20050328
  Serious: Yes (Life-Threatening, Hospitalization)
  Sender: FDA-Public Use
  Company Number: GB-MERCK-0404GBR00106

PATIENT
  Age: 79 Year
  Sex: Male

DRUGS (8)
  1. VIOXX [Suspect]
     Indication: GOUT
     Route: 048
     Dates: start: 20040311, end: 20040329
  2. ASPIRIN [Suspect]
     Indication: CORONARY ARTERY DISEASE
     Route: 048
     Dates: start: 20011210, end: 20040329
  3. FUROSEMIDE [Concomitant]
     Indication: HYPERTENSION
     Route: 048
     Dates: start: 19960909
  4. LEVOTHYROXINE SODIUM [Concomitant]
     Indication: HYPOTHYROIDISM
     Route: 048
     Dates: start: 19880208
  5. LISINOPRIL [Concomitant]
     Indication: HYPERTENSION
     Route: 048
     Dates: start: 20010623
  6. ISOSORBIDE MONONITRATE [Concomitant]
     Indication: CORONARY ARTERY DISEASE
     Route: 048
     Dates: start: 20031020
  7. GLICLAZIDE [Concomitant]
     Indication: DIABETES MELLITUS
     Route: 048
     Dates: start: 19960402
  8. METFORMIN [Concomitant]
     Indication: DIABETES MELLITUS
     Route: 048
     Dates: start: 20000323

REACTIONS (3)
  - DIZZINESS [None]
  - FAECES DISCOLOURED [None]
  - GASTROINTESTINAL HAEMORRHAGE [None]
